FAERS Safety Report 17658054 (Version 8)
Quarter: 2022Q3

REPORT INFORMATION
  Report Type: Report from Study
  Country: US (occurrence: US)
  Receive Date: 20200411
  Receipt Date: 20220829
  Transmission Date: 20221027
  Serious: Yes (Other)
  Sender: FDA-Public Use
  Company Number: NVSC2020US093982

PATIENT
  Sex: Female
  Weight: 96.2 kg

DRUGS (1)
  1. TRILEPTAL [Suspect]
     Active Substance: OXCARBAZEPINE
     Indication: Central pain syndrome
     Dosage: 300 MG, QD
     Route: 048
     Dates: start: 20081024

REACTIONS (9)
  - Eye haemorrhage [Recovering/Resolving]
  - Ocular discomfort [Unknown]
  - Malaise [Unknown]
  - Nasopharyngitis [Unknown]
  - COVID-19 [Unknown]
  - Eye disorder [Unknown]
  - Dizziness [Unknown]
  - Headache [Unknown]
  - Visual impairment [Unknown]
